FAERS Safety Report 14530322 (Version 1)
Quarter: 2018Q1

REPORT INFORMATION
  Report Type: Spontaneous
  Country: US (occurrence: US)
  Receive Date: 20180214
  Receipt Date: 20180214
  Transmission Date: 20180509
  Serious: No
  Sender: FDA-Public Use
  Company Number: US-GLAXOSMITHKLINE-US2018022209

PATIENT

DRUGS (2)
  1. NICORETTE [Suspect]
     Active Substance: NICOTINE
     Indication: NICOTINE DEPENDENCE
     Dosage: UNK
  2. NICORETTE WHITE ICE MINT [Suspect]
     Active Substance: NICOTINE
     Indication: NICOTINE DEPENDENCE
     Dosage: UNK

REACTIONS (9)
  - Burning sensation [Unknown]
  - Product taste abnormal [None]
  - Drug effect incomplete [Unknown]
  - Vomiting [None]
  - Cough [None]
  - Paraesthesia [Unknown]
  - Wrong technique in product usage process [None]
  - Throat irritation [Unknown]
  - Feeling abnormal [Unknown]
